FAERS Safety Report 8174790-9 (Version None)
Quarter: 2012Q1

REPORT INFORMATION
  Report Type: 
  Country: None (occurrence: None)
  Receive Date: 20120229
  Receipt Date: 20120222
  Transmission Date: 20120608
  Serious: Yes (Hospitalization, Other)
  Sender: FDA-Public Use
  Company Number: FR-PFIZER INC-2012046211

PATIENT
  Age: 33 Year
  Sex: Female

DRUGS (3)
  1. SULFASALAZINE [Suspect]
     Indication: RHEUMATOID ARTHRITIS
     Dosage: UNK
     Route: 048
     Dates: start: 20111116
  2. REMICADE [Suspect]
     Indication: RHEUMATOID ARTHRITIS
     Dosage: 100 MG
     Route: 042
     Dates: start: 20111121, end: 20111121
  3. REMICADE [Suspect]
     Dosage: 100 MG
     Route: 042
     Dates: start: 20111209, end: 20111209

REACTIONS (5)
  - SPINAL DISORDER [None]
  - DRUG RASH WITH EOSINOPHILIA AND SYSTEMIC SYMPTOMS [None]
  - SERUM SICKNESS [None]
  - MONONUCLEOSIS SYNDROME [None]
  - NEMATODIASIS [None]
